FAERS Safety Report 20491620 (Version 2)
Quarter: 2022Q4

REPORT INFORMATION
  Report Type: Spontaneous
  Country: CA (occurrence: CA)
  Receive Date: 20220218
  Receipt Date: 20221111
  Transmission Date: 20230113
  Serious: Yes (Other)
  Sender: FDA-Public Use
  Company Number: None

PATIENT
  Sex: Female

DRUGS (2)
  1. CITALOPRAM HYDROBROMIDE [Interacting]
     Active Substance: CITALOPRAM HYDROBROMIDE
     Indication: Product used for unknown indication
     Dosage: UNK UNK, QD
  2. DONEPEZIL [Suspect]
     Active Substance: DONEPEZIL
     Indication: Secondary progressive multiple sclerosis
     Dosage: 1 DF, QD
     Route: 048

REACTIONS (1)
  - Potentiating drug interaction [Unknown]
